FAERS Safety Report 5731517-5 (Version None)
Quarter: 2008Q2

REPORT INFORMATION
  Report Type: 
  Country: None (occurrence: None)
  Receive Date: 20080508
  Receipt Date: 20080430
  Transmission Date: 20081010
  Serious: Yes (Hospitalization)
  Sender: FDA-Public Use
  Company Number: CA-JNJFOC-20080500236

PATIENT
  Sex: Female

DRUGS (1)
  1. REMICADE [Suspect]
     Indication: CROHN'S DISEASE
     Dosage: 11 INFUSIONS ON UNSPECIFIED DATES AT UNSPECIFIED DOSES
     Route: 042

REACTIONS (3)
  - INTESTINAL OBSTRUCTION [None]
  - LUPUS-LIKE SYNDROME [None]
  - PLEURAL EFFUSION [None]
